FAERS Safety Report 7974982-5 (Version None)
Quarter: 2011Q4

REPORT INFORMATION
  Report Type: 
  Country: None (occurrence: None)
  Receive Date: 20111213
  Receipt Date: 20111024
  Transmission Date: 20120403
  Serious: No
  Sender: FDA-Public Use
  Company Number: US-AMGEN-USASP2011054940

PATIENT
  Age: 44 Year
  Sex: Male

DRUGS (3)
  1. ENBREL [Suspect]
     Indication: PSORIASIS
     Dosage: 50 MG, QWK
     Dates: start: 20070101
  2. OLUX E [Concomitant]
     Dosage: UNK
     Route: 061
  3. KENALOG [Concomitant]
     Dosage: 10 MG, Q6WK

REACTIONS (1)
  - PSORIASIS [None]
